FAERS Safety Report 25974897 (Version 2)
Quarter: 2025Q4

REPORT INFORMATION
  Report Type: Spontaneous
  Country: US (occurrence: US)
  Receive Date: 20251029
  Receipt Date: 20251110
  Transmission Date: 20260118
  Serious: Yes (Other)
  Sender: TEVA
  Company Number: US-TEVA-VS-3384728

PATIENT
  Age: 5 Year
  Sex: Female

DRUGS (8)
  1. LEVOFLOXACIN [Suspect]
     Active Substance: LEVOFLOXACIN
     Indication: Klebsiella infection
     Route: 065
  2. POLYMYXIN B [Concomitant]
     Active Substance: POLYMYXIN B
     Indication: CNS ventriculitis
     Dosage: INTRAVENTRICULAR, RECEIVED ON DAY 2
     Route: 065
  3. POLYMYXIN B [Concomitant]
     Active Substance: POLYMYXIN B
     Indication: CNS ventriculitis
     Dosage: INTRAVENTRICULAR
     Route: 065
  4. POLYMYXIN B [Concomitant]
     Active Substance: POLYMYXIN B
     Indication: CNS ventriculitis
     Dosage: RECEIVED ON DAY 1, INTRAVENTRICULAR
     Route: 065
  5. POLYMYXIN B [Concomitant]
     Active Substance: POLYMYXIN B
     Indication: CNS ventriculitis
     Dosage: INTRAVENTRICULAR
     Route: 065
  6. CEFEPIME [Suspect]
     Active Substance: CEFEPIME HYDROCHLORIDE
     Indication: Klebsiella infection
     Route: 065
  7. CEFTRIAXONE [Suspect]
     Active Substance: CEFTRIAXONE
     Indication: Klebsiella infection
     Route: 065
  8. GENTAMICIN [Suspect]
     Active Substance: GENTAMICIN
     Indication: Klebsiella infection
     Dosage: INTRAVENTRICULAR
     Route: 065

REACTIONS (2)
  - Drug ineffective [Unknown]
  - Pathogen resistance [Unknown]
